FAERS Safety Report 16541016 (Version 1)
Quarter: 2019Q3

REPORT INFORMATION
  Report Type: Spontaneous
  Country: US (occurrence: US)
  Receive Date: 20190708
  Receipt Date: 20190708
  Transmission Date: 20191004
  Serious: No
  Sender: FDA-Public Use
  Company Number: US-ENDO PHARMACEUTICALS INC-2019-102384

PATIENT
  Age: 85 Year
  Sex: Female

DRUGS (2)
  1. DRUG, UNKNOWN [Concomitant]
     Active Substance: UNSPECIFIED INGREDIENT
     Indication: HYPERTENSION
  2. CALCITONIN-SALMON [Suspect]
     Active Substance: CALCITONIN SALMON
     Indication: BONE DISORDER
     Dosage: 1 SHOT IN THE NOSTRIL (ALTERNATE NOSTRILS)
     Route: 045
     Dates: start: 20190223, end: 20190225

REACTIONS (3)
  - Dyspnoea [Recovered/Resolved]
  - Palpitations [Recovered/Resolved]
  - Dizziness [Recovered/Resolved]

NARRATIVE: CASE EVENT DATE: 20190223
